FAERS Safety Report 4426379-2 (Version None)
Quarter: 2004Q3

REPORT INFORMATION
  Report Type: 
  Country: None (occurrence: None)
  Receive Date: 20040811
  Receipt Date: 20040722
  Transmission Date: 20050211
  Serious: Yes (Hospitalization, Other)
  Sender: FDA-Public Use
  Company Number: DE_040613805

PATIENT
  Age: 67 Year
  Sex: Female

DRUGS (3)
  1. GEMZAR [Suspect]
     Indication: BREAST CANCER METASTATIC
     Dosage: 1250 MG/M2
     Dates: start: 20040211, end: 20040707
  2. TAXOL [Concomitant]
  3. DEXAMETHASONE [Concomitant]

REACTIONS (4)
  - ANAEMIA [None]
  - CIRCULATORY COLLAPSE [None]
  - ESCHERICHIA URINARY TRACT INFECTION [None]
  - POLYURIA [None]
